FAERS Safety Report 5040531-7 (Version None)
Quarter: 2006Q2

REPORT INFORMATION
  Report Type: 
  Country: None (occurrence: None)
  Receive Date: 20060627
  Receipt Date: 20060627
  Transmission Date: 20061013
  Serious: Yes (Other)
  Sender: FDA-Public Use
  Company Number: None

PATIENT
  Sex: Male
  Weight: 100.2449 kg

DRUGS (5)
  1. ASPIRIN [Suspect]
     Indication: CARDIAC DISORDER
     Dosage: 81 MG DAILY PO
     Route: 048
     Dates: start: 20020101, end: 20060401
  2. SIMVASTATIN [Concomitant]
  3. CALCIUM ACETATE [Concomitant]
  4. FISH OIL [Concomitant]
  5. MULTIVIT/MIN [Concomitant]

REACTIONS (5)
  - CONSTIPATION [None]
  - FEELING ABNORMAL [None]
  - HAEMORRHAGE [None]
  - IRON DEFICIENCY ANAEMIA [None]
  - TREATMENT NONCOMPLIANCE [None]
